FAERS Safety Report 5130864-8 (Version None)
Quarter: 2006Q4

REPORT INFORMATION
  Report Type: 
  Country: None (occurrence: None)
  Receive Date: 20061013
  Receipt Date: 20061004
  Transmission Date: 20070319
  Serious: Yes (Death)
  Sender: FDA-Public Use
  Company Number: 06-047A

PATIENT
  Sex: Male

DRUGS (1)
  1. LORCET PLUS TABLETS 7.5/650 (HYDROCODONE BITARTRATE AND ACETAMINOPHEN) [Suspect]

REACTIONS (1)
  - DEATH [None]
